FAERS Safety Report 17696911 (Version 1)
Quarter: 2020Q2

REPORT INFORMATION
  Report Type: Spontaneous
  Country: US (occurrence: US)
  Receive Date: 20200423
  Receipt Date: 20200423
  Transmission Date: 20200714
  Serious: No
  Sender: FDA-Public Use
  Company Number: US-BAUSCH-BL-2020-009251

PATIENT
  Sex: Female

DRUGS (1)
  1. LACRISERT [Suspect]
     Active Substance: HYDROXYPROPYL CELLULOSE
     Indication: DRY EYE
     Route: 047

REACTIONS (3)
  - Product availability issue [Unknown]
  - Eye discharge [Unknown]
  - Wrong technique in product usage process [Unknown]
